FAERS Safety Report 19776944 (Version 1)
Quarter: 2021Q3

REPORT INFORMATION
  Report Type: Spontaneous
  Country: US (occurrence: US)
  Receive Date: 20210902
  Receipt Date: 20210902
  Transmission Date: 20211014
  Serious: Yes (Other)
  Sender: FDA-Public Use
  Company Number: US-SA-2021SA286200

PATIENT
  Sex: Female
  Weight: 60.78 kg

DRUGS (20)
  1. ZOMIG [Concomitant]
     Active Substance: ZOLMITRIPTAN
  2. ZOLOFT [Concomitant]
     Active Substance: SERTRALINE HYDROCHLORIDE
  3. LOSARTAN POTASSIUM. [Concomitant]
     Active Substance: LOSARTAN POTASSIUM
  4. BACLOFEN. [Concomitant]
     Active Substance: BACLOFEN
  5. SINGULAIR [Concomitant]
     Active Substance: MONTELUKAST SODIUM
  6. CALCIUM +VIT D [Concomitant]
     Active Substance: CALCIUM\VITAMIN D
  7. BETAMETHASONE. [Concomitant]
     Active Substance: BETAMETHASONE
  8. ALBUTEROL SULFATE. [Concomitant]
     Active Substance: ALBUTEROL SULFATE
  9. NEURONTIN [Concomitant]
     Active Substance: GABAPENTIN
  10. RED YEAST RICE [Concomitant]
     Active Substance: DIETARY SUPPLEMENT
  11. AUBAGIO [Suspect]
     Active Substance: TERIFLUNOMIDE
     Indication: MULTIPLE SCLEROSIS
     Dosage: 14 MG, QD
     Route: 048
     Dates: start: 201903
  12. GABAPENTIN. [Concomitant]
     Active Substance: GABAPENTIN
  13. REGULOID [Concomitant]
     Active Substance: PSYLLIUM HUSK
  14. PRAVASTATIN SODIUM. [Concomitant]
     Active Substance: PRAVASTATIN SODIUM
  15. TOPROL XL [Concomitant]
     Active Substance: METOPROLOL SUCCINATE
  16. PROAIR HFA [Concomitant]
     Active Substance: ALBUTEROL SULFATE
  17. ADVAIR HFA [Concomitant]
     Active Substance: FLUTICASONE PROPIONATE\SALMETEROL XINAFOATE
  18. SERTRALINE HCL [Concomitant]
     Active Substance: SERTRALINE HYDROCHLORIDE
  19. ASPIRIN EC [Concomitant]
     Active Substance: ASPIRIN
  20. MAGNESIUM [Concomitant]
     Active Substance: MAGNESIUM

REACTIONS (6)
  - Balance disorder [Unknown]
  - Drooling [Unknown]
  - Visual impairment [Unknown]
  - Dysphagia [Unknown]
  - Condition aggravated [Unknown]
  - Product dose omission issue [Unknown]
